FAERS Safety Report 14538012 (Version 2)
Quarter: 2018Q1

REPORT INFORMATION
  Report Type: Report from Study
  Country: None (occurrence: NL)
  Receive Date: 20180216
  Receipt Date: 20180305
  Transmission Date: 20180509
  Serious: Yes (Other)
  Sender: FDA-Public Use
  Company Number: NL-ABBVIE-16P-114-1801633-00

PATIENT
  Age: 72 Year
  Sex: Female

DRUGS (3)
  1. DUODOPA [Suspect]
     Active Substance: CARBIDOPA\LEVODOPA
     Route: 050
  2. DUODOPA [Suspect]
     Active Substance: CARBIDOPA\LEVODOPA
     Indication: PARKINSON^S DISEASE
     Route: 050
     Dates: start: 20140224
  3. NUTRIDRINK [Concomitant]
     Active Substance: CARBOHYDRATES\FATTY ACIDS\MINERALS\PROTEIN\VITAMINS
     Indication: PRODUCT USED FOR UNKNOWN INDICATION

REACTIONS (41)
  - Bacterial infection [Not Recovered/Not Resolved]
  - Amnesia [Not Recovered/Not Resolved]
  - On and off phenomenon [Not Recovered/Not Resolved]
  - Agitation [Not Recovered/Not Resolved]
  - Insomnia [Not Recovered/Not Resolved]
  - Stoma complication [Not Recovered/Not Resolved]
  - Loss of consciousness [Not Recovered/Not Resolved]
  - Device battery issue [Recovered/Resolved]
  - General physical health deterioration [Not Recovered/Not Resolved]
  - Bowel movement irregularity [Not Recovered/Not Resolved]
  - Skin irritation [Unknown]
  - Irritability [Not Recovered/Not Resolved]
  - Hypotension [Not Recovered/Not Resolved]
  - Syncope [Not Recovered/Not Resolved]
  - Memory impairment [Not Recovered/Not Resolved]
  - Incontinence [Recovering/Resolving]
  - Device dislocation [Recovered/Resolved]
  - Feeling abnormal [Recovered/Resolved]
  - Gastrointestinal candidiasis [Not Recovered/Not Resolved]
  - Skin discolouration [Recovered/Resolved]
  - Alopecia [Recovered/Resolved]
  - Fall [Not Recovered/Not Resolved]
  - Stoma site pain [Not Recovered/Not Resolved]
  - Musculoskeletal stiffness [Not Recovered/Not Resolved]
  - Fibroma [Not Recovered/Not Resolved]
  - Cognitive disorder [Unknown]
  - Feeling abnormal [Not Recovered/Not Resolved]
  - Balance disorder [Not Recovered/Not Resolved]
  - Asthenia [Not Recovered/Not Resolved]
  - Stoma site discomfort [Unknown]
  - Fistula discharge [Unknown]
  - Wound complication [Unknown]
  - Fatigue [Not Recovered/Not Resolved]
  - Stoma site discharge [Not Recovered/Not Resolved]
  - Bradykinesia [Recovering/Resolving]
  - Stoma site erythema [Not Recovered/Not Resolved]
  - Nocturia [Recovering/Resolving]
  - Folliculitis [Recovered/Resolved]
  - Fistula [Unknown]
  - Stoma site inflammation [Not Recovered/Not Resolved]
  - Stoma site irritation [Not Recovered/Not Resolved]

NARRATIVE: CASE EVENT DATE: 20161215
